FAERS Safety Report 24277019 (Version 1)
Quarter: 2024Q3

REPORT INFORMATION
  Report Type: Spontaneous
  Country: US (occurrence: None)
  Receive Date: 20240829
  Receipt Date: 20240829
  Transmission Date: 20241016
  Serious: No
  Sender: Public
  Company Number: None

PATIENT

DRUGS (2)
  1. POTASSIUM CHLORIDE IN SODIUM CHLORIDE [Suspect]
     Active Substance: POTASSIUM CHLORIDE\SODIUM CHLORIDE
  2. POTASSIUM CHLORIDE IN DEXTROSE [Suspect]
     Active Substance: DEXTROSE MONOHYDRATE\POTASSIUM CHLORIDE

REACTIONS (6)
  - Product storage error [None]
  - Intercepted product selection error [None]
  - Product name confusion [None]
  - Product name confusion [None]
  - Product label confusion [None]
  - Product packaging confusion [None]
